FAERS Safety Report 11051356 (Version 2)
Quarter: 2018Q1

REPORT INFORMATION
  Report Type: Spontaneous
  Country: US (occurrence: US)
  Receive Date: 20150421
  Receipt Date: 20180222
  Transmission Date: 20180508
  Serious: Yes (Life-Threatening, Hospitalization)
  Sender: FDA-Public Use
  Company Number: US-ASTRAZENECA-2015SE35012

PATIENT
  Age: 39 Year
  Sex: Male

DRUGS (8)
  1. QUETIAPINE FUMARATE. [Interacting]
     Active Substance: QUETIAPINE FUMARATE
     Indication: MANIA
     Dosage: 700.0MG UNKNOWN
     Route: 048
  2. QUETIAPINE FUMARATE. [Suspect]
     Active Substance: QUETIAPINE FUMARATE
     Indication: BIPOLAR I DISORDER
     Dosage: 150.0MG UNKNOWN
     Route: 048
  3. VALPROIC ACID. [Interacting]
     Active Substance: VALPROIC ACID
     Indication: BIPOLAR I DISORDER
     Route: 065
  4. LORAZEPAM. [Concomitant]
     Active Substance: LORAZEPAM
  5. QUETIAPINE FUMARATE. [Interacting]
     Active Substance: QUETIAPINE FUMARATE
     Indication: MANIA
     Dosage: 150.0MG UNKNOWN
     Route: 048
  6. QUETIAPINE FUMARATE. [Interacting]
     Active Substance: QUETIAPINE FUMARATE
     Indication: MANIA
     Dosage: 800.0MG UNKNOWN
     Route: 048
  7. QUETIAPINE FUMARATE. [Interacting]
     Active Substance: QUETIAPINE FUMARATE
     Indication: BIPOLAR I DISORDER
     Dosage: 700.0MG UNKNOWN
     Route: 048
  8. QUETIAPINE FUMARATE. [Interacting]
     Active Substance: QUETIAPINE FUMARATE
     Indication: BIPOLAR I DISORDER
     Dosage: 800.0MG UNKNOWN
     Route: 048

REACTIONS (12)
  - Hypercapnia [Recovered/Resolved]
  - Weight increased [Recovered/Resolved]
  - Hyperglycaemia [Recovered/Resolved]
  - Blood cholesterol increased [Recovered/Resolved]
  - Diabetic ketoacidosis [Recovered/Resolved]
  - Lipids increased [Recovered/Resolved]
  - Hyperosmolar state [Recovered/Resolved]
  - Diabetes mellitus [Recovered/Resolved]
  - Coma [Recovered/Resolved]
  - Drug interaction [Recovered/Resolved]
  - Hypoxia [Recovered/Resolved]
  - Hypertriglyceridaemia [Recovered/Resolved]
